FAERS Safety Report 18319572 (Version 2)
Quarter: 2021Q1

REPORT INFORMATION
  Report Type: Spontaneous
  Country: NL (occurrence: NL)
  Receive Date: 20200928
  Receipt Date: 20210105
  Transmission Date: 20210419
  Serious: Yes (Other)
  Sender: FDA-Public Use
  Company Number: NL-TEVA-2020-NL-1830680

PATIENT
  Age: 57 Year
  Sex: Male
  Weight: 80 kg

DRUGS (9)
  1. DEXAMETHASON INJVLST  1MG/ML (BASE) / BRAND NAME NOT SPECIFIED [Concomitant]
     Dosage: THERAPY START DATE AND END DATE: ASKU, INJECTION SOLUTION, 1 MG / ML
  2. ENOXAPARINE INJVLST 10.000IE/ML (100MG/ML) / CLEXANE INJVLST  2.000IE [Concomitant]
     Dosage: 10,000 IU / ML, 1 DOSAGE FORM, THERAPY START DATE AND END DATE: ASKED BUT UNKNOWN
  3. CEFTRIAXON INFUSIEPOEDER 2000MG / BRAND NAME NOT SPECIFIED [Concomitant]
     Dosage: 2000 MG, THERAPY START DATE AND END DATE: ASKED BUT UNKNOWN
  4. OXAZEPAM TABLET 10MG / BRAND NAME NOT SPECIFIED [Concomitant]
     Active Substance: OXAZEPAM
     Dosage: 10 MG, THERAPY START DATE AND END DATE: ASKED BUT UNKNOWN
  5. CODEINE TABLET 10MG / BRAND NAME NOT SPECIFIED [Suspect]
     Active Substance: CODEINE
     Indication: COUGH
     Dosage: 1 TABLET TWICE DAILY AND 2 TABLETS AT 22:00, 1 DOSAGE FORM
     Dates: start: 20200823, end: 20200824
  6. PANTOPRAZOL TABLET MSR 40MG / BRAND NAME NOT SPECIFIED [Concomitant]
     Active Substance: PANTOPRAZOLE
     Dosage: 40 MG , THERAPY START DATE AND END DATE: ASKED BUT UNKNOWN
  7. LOPERAMIDE CAPSULE 2MG / BRAND NAME NOT SPECIFIED [Concomitant]
     Dosage: 2 MG, THERAPY START DATE AND END DATE: ASKED BUT UNKNOWN
  8. AZITROMYCINE TABLET 500MG / BRAND NAME NOT SPECIFIED [Suspect]
     Active Substance: AZITHROMYCIN
     Indication: PNEUMONIA
     Dosage: 500 MILLIGRAM DAILY;
     Dates: start: 20200821, end: 20200824
  9. REMDESIVIR INFOPL CONC 5MG/ML / BRAND NAME NOT SPECIFIEDREMDESIVIR INF [Suspect]
     Active Substance: REMDESIVIR
     Indication: COVID-19
     Dosage: 100 MILLIGRAM DAILY;
     Dates: start: 20200821, end: 20200825

REACTIONS (1)
  - Bradycardia [Recovered/Resolved]

NARRATIVE: CASE EVENT DATE: 20200823
